FAERS Safety Report 26010792 (Version 1)
Quarter: 2025Q4

REPORT INFORMATION
  Report Type: Report from Study
  Country: GB (occurrence: GB)
  Receive Date: 20251107
  Receipt Date: 20251107
  Transmission Date: 20260119
  Serious: Yes (Death)
  Sender: AMGEN
  Company Number: GB-AMGEN-GBRSL2025217503

PATIENT
  Age: 86 Year
  Sex: Female

DRUGS (1)
  1. ADALIMUMAB [Suspect]
     Active Substance: ADALIMUMAB
     Indication: Psoriasis
     Dosage: 40 MILLIGRAM, INJECT ONE 40MG PRE-FILLED PEN Q2WK
     Route: 065
     Dates: start: 202507, end: 202510

REACTIONS (5)
  - Death [Fatal]
  - Infection [Unknown]
  - Fall [Unknown]
  - Feeling abnormal [Unknown]
  - General physical health deterioration [Unknown]

NARRATIVE: CASE EVENT DATE: 20250101
